FAERS Safety Report 15578154 (Version 1)
Quarter: 2018Q4

REPORT INFORMATION
  Report Type: Spontaneous
  Country: US (occurrence: US)
  Receive Date: 20181102
  Receipt Date: 20181102
  Transmission Date: 20190205
  Serious: No
  Sender: FDA-Public Use
  Company Number: US-TEVA-2018-US-971664

PATIENT
  Sex: Female

DRUGS (1)
  1. FLUOCINONIDE TOPICAL SOLUTION [Suspect]
     Active Substance: FLUOCINONIDE
     Route: 061

REACTIONS (1)
  - Hypersensitivity [Unknown]
